FAERS Safety Report 6593535-7 (Version None)
Quarter: 2010Q1

REPORT INFORMATION
  Report Type: 
  Country: None (occurrence: None)
  Receive Date: 20100222
  Receipt Date: 20090713
  Transmission Date: 20100710
  Serious: No
  Sender: FDA-Public Use
  Company Number: US-BRISTOL-MYERS SQUIBB COMPANY-14687560

PATIENT
  Age: 32 Year
  Sex: Female

DRUGS (1)
  1. ORENCIA [Suspect]
     Dosage: 1 DF = 4 VIALS THERAPY INITIATED ON 09-SEP-2008
     Route: 042
     Dates: start: 20090616, end: 20090616

REACTIONS (3)
  - DYSPNOEA [None]
  - FATIGUE [None]
  - WEIGHT DECREASED [None]
